FAERS Safety Report 11679986 (Version 2)
Quarter: 2015Q4

REPORT INFORMATION
  Report Type: Spontaneous
  Country: US (occurrence: US)
  Receive Date: 20151027
  Receipt Date: 20151104
  Transmission Date: 20160304
  Serious: No
  Sender: FDA-Public Use
  Company Number: US-ELI_LILLY_AND_COMPANY-US201011003806

PATIENT
  Age: 84 Year
  Sex: Female

DRUGS (1)
  1. FORTEO [Suspect]
     Active Substance: TERIPARATIDE
     Indication: OSTEOPOROSIS

REACTIONS (7)
  - Pain [Unknown]
  - Rash macular [Recovered/Resolved]
  - Myalgia [Unknown]
  - Musculoskeletal discomfort [Unknown]
  - Sensory disturbance [Unknown]
  - Paraesthesia [Unknown]
  - Nausea [Unknown]
